FAERS Safety Report 8228071-5 (Version None)
Quarter: 2012Q1

REPORT INFORMATION
  Report Type: 
  Country: None (occurrence: None)
  Receive Date: 20120322
  Receipt Date: 20120104
  Transmission Date: 20120608
  Serious: Yes (Hospitalization, Other)
  Sender: FDA-Public Use
  Company Number: US-BRISTOL-MYERS SQUIBB COMPANY-16329807

PATIENT
  Age: 64 Year
  Sex: Male
  Weight: 79 kg

DRUGS (1)
  1. ERBITUX [Suspect]
     Dosage: INTERRUPT ON 19DEC2011. 6 TREATMENTS
     Dates: start: 20111028

REACTIONS (9)
  - ACNE [None]
  - PAIN [None]
  - DRY SKIN [None]
  - ERYTHEMA [None]
  - SKIN FISSURES [None]
  - SKIN EXFOLIATION [None]
  - SKIN DISORDER [None]
  - DEVICE RELATED INFECTION [None]
  - PRURITUS [None]
